FAERS Safety Report 4917646-4 (Version None)
Quarter: 2006Q1

REPORT INFORMATION
  Report Type: 
  Country: None (occurrence: None)
  Receive Date: 20060221
  Receipt Date: 20060109
  Transmission Date: 20060701
  Serious: Yes (Disabling)
  Sender: FDA-Public Use
  Company Number: GBWYE287009JAN06

PATIENT
  Sex: Female
  Weight: 70.6 kg

DRUGS (4)
  1. ENBREL [Suspect]
     Indication: RHEUMATOID ARTHRITIS
     Route: 058
     Dates: start: 20020520
  2. ENBREL [Suspect]
     Route: 058
     Dates: start: 20020520, end: 20051101
  3. WARFARIN [Concomitant]
     Indication: DEEP VEIN THROMBOSIS
     Dosage: VARIABLE
     Route: 048
     Dates: start: 20050119
  4. METHOTREXATE [Concomitant]
     Route: 065
     Dates: start: 20040105

REACTIONS (4)
  - CONDITION AGGRAVATED [None]
  - DRUG EFFECT DECREASED [None]
  - PAIN [None]
  - RHEUMATOID ARTHRITIS [None]
